FAERS Safety Report 15776803 (Version 2)
Quarter: 2019Q1

REPORT INFORMATION
  Report Type: Spontaneous
  Country: US (occurrence: US)
  Receive Date: 20181231
  Receipt Date: 20190125
  Transmission Date: 20190417
  Serious: Yes (Other)
  Sender: FDA-Public Use
  Company Number: US-PFIZER INC-2018535910

PATIENT
  Age: 80 Year
  Sex: Female

DRUGS (8)
  1. FENTANYL CITRATE. [Suspect]
     Active Substance: FENTANYL CITRATE
     Dosage: UNK
  2. DIAZEPAM. [Concomitant]
     Active Substance: DIAZEPAM
     Dosage: 130 MG, DAILY
  3. DIAZEPAM. [Concomitant]
     Active Substance: DIAZEPAM
     Dosage: 5 MG, 2X/DAY
  4. ATIVAN [Suspect]
     Active Substance: LORAZEPAM
     Dosage: UNK
  5. DIAZEPAM. [Concomitant]
     Active Substance: DIAZEPAM
     Dosage: 5 MG, UNK
  6. ALDACTONE [Concomitant]
     Active Substance: SPIRONOLACTONE
     Indication: PAIN
     Dosage: UNK
  7. CLINDAMYCIN HCL [Suspect]
     Active Substance: CLINDAMYCIN HYDROCHLORIDE
     Dosage: UNK
     Route: 048
  8. SPIRONOLACTONE. [Concomitant]
     Active Substance: SPIRONOLACTONE
     Indication: PAIN
     Dosage: UNK

REACTIONS (5)
  - Walking aid user [Unknown]
  - Constipation [Unknown]
  - Pain [Unknown]
  - Urinary tract infection [Recovered/Resolved]
  - Drug hypersensitivity [Unknown]
